FAERS Safety Report 8816742 (Version 2)
Quarter: 2012Q4

REPORT INFORMATION
  Report Type: Spontaneous
  Country: US (occurrence: None)
  Receive Date: 20121001
  Receipt Date: 20121004
  Transmission Date: 20130627
  Serious: Yes (Hospitalization, Other)
  Sender: FDA-Public Use
  Company Number: JPI-P-025185

PATIENT
  Age: 47 Year
  Sex: Female

DRUGS (4)
  1. XYREM [Suspect]
     Indication: FIBROMYALGIA
     Dosage: 9 gm (4.5 gm, 2 in 1 d), oral
     Route: 048
     Dates: start: 20090625
  2. AMPHETAMINE, DEXTROAMPHETAMINE MIXED SALTS [Concomitant]
  3. FLUVOXAMINE MALEATE [Concomitant]
  4. LAMOTRIGINE [Concomitant]

REACTIONS (9)
  - Spinal laminectomy [None]
  - Fatigue [None]
  - Immune system disorder [None]
  - Nervous system disorder [None]
  - Staphylococcal infection [None]
  - Initial insomnia [None]
  - Pain [None]
  - Osteoarthritis [None]
  - Spinal fusion surgery [None]
